FAERS Safety Report 6193772-X (Version None)
Quarter: 2009Q2

REPORT INFORMATION
  Report Type: 
  Country: None (occurrence: None)
  Receive Date: 20090506
  Receipt Date: 20090422
  Transmission Date: 20091009
  Serious: Yes (Other)
  Sender: FDA-Public Use
  Company Number: US-144802

PATIENT
  Sex: Female

DRUGS (2)
  1. WINRHO [Suspect]
     Indication: IDIOPATHIC THROMBOCYTOPENIC PURPURA
     Dosage: 70 ?G/KG TOTAL INTRAVENOUS (NOT OTHERWISE SPECIFIED)
     Route: 042
     Dates: start: 20090312, end: 20090312
  2. WINRHO [Suspect]

REACTIONS (5)
  - FIBRIN D DIMER INCREASED [None]
  - MALAISE [None]
  - OVERDOSE [None]
  - PIGMENT NEPHROPATHY [None]
  - RENAL FAILURE ACUTE [None]
